FAERS Safety Report 9067258 (Version 1)
Quarter: 2013Q1

REPORT INFORMATION
  Report Type: Spontaneous
  Country: US (occurrence: US)
  Receive Date: 20130214
  Receipt Date: 20130214
  Transmission Date: 20140127
  Serious: Yes (Hospitalization)
  Sender: FDA-Public Use
  Company Number: PHHY2013US013479

PATIENT
  Age: 50 Year
  Sex: Male

DRUGS (4)
  1. LEVETIRACETAM [Suspect]
     Dosage: 1000 MG, BID
     Route: 048
  2. GABAPENTIN [Concomitant]
     Dosage: 600 MG, QD
     Route: 048
  3. VALPROIC ACID [Concomitant]
     Dosage: 500 MG, BID
     Route: 048
  4. ESOMEPRAZOLE [Concomitant]
     Dosage: 40 MG, QD
     Route: 048

REACTIONS (7)
  - Substance-induced psychotic disorder [Recovered/Resolved]
  - Anxiety [Recovered/Resolved]
  - Agitation [Recovered/Resolved]
  - Feeling abnormal [Recovered/Resolved]
  - Emotional distress [Recovered/Resolved]
  - Pruritus [Recovered/Resolved]
  - Incorrect dose administered [Unknown]
